FAERS Safety Report 9457726 (Version 3)
Quarter: 2013Q3

REPORT INFORMATION
  Report Type: Spontaneous
  Country: IL (occurrence: IL)
  Receive Date: 20130814
  Receipt Date: 20130906
  Transmission Date: 20140515
  Serious: Yes (Life-Threatening, Other)
  Sender: FDA-Public Use
  Company Number: IL-RANBAXY-2013RR-72156

PATIENT
  Age: 64 Year
  Sex: Female

DRUGS (1)
  1. CEFUROXIME [Suspect]
     Indication: INFECTION PROPHYLAXIS
     Dosage: 1.0 MG/ 0.1 ML
     Route: 031
     Dates: start: 20130304

REACTIONS (2)
  - Anaphylactic reaction [Recovered/Resolved]
  - Off label use [Recovered/Resolved]
